FAERS Safety Report 17517558 (Version 3)
Quarter: 2020Q1

REPORT INFORMATION
  Report Type: Spontaneous
  Country: JP (occurrence: JP)
  Receive Date: 20200309
  Receipt Date: 20200316
  Transmission Date: 20200409
  Serious: Yes (Other)
  Sender: FDA-Public Use
  Company Number: JP-009507513-2003JPN000454J

PATIENT
  Age: 80 Year
  Sex: Female

DRUGS (3)
  1. GLACTIV [Suspect]
     Active Substance: SITAGLIPTIN
     Dosage: 50 MILLIGRAM DAILY
     Route: 048
  2. GLACTIV [Suspect]
     Active Substance: SITAGLIPTIN
     Dosage: 25 MILLIGRAM DAILY
     Route: 048
  3. GLACTIV [Suspect]
     Active Substance: SITAGLIPTIN
     Dosage: 100 MG DAILY
     Route: 048

REACTIONS (1)
  - Seronegative arthritis [Recovering/Resolving]
